FAERS Safety Report 18961482 (Version 1)
Quarter: 2021Q1

REPORT INFORMATION
  Report Type: Spontaneous
  Country: US (occurrence: US)
  Receive Date: 20210302
  Receipt Date: 20210302
  Transmission Date: 20210420
  Serious: Yes (Hospitalization)
  Sender: FDA-Public Use
  Company Number: US-PFIZER INC-2021199480

PATIENT
  Sex: Female

DRUGS (8)
  1. VALPROEX [Suspect]
     Active Substance: VALPROATE SODIUM
     Dosage: UNK
  2. VALPROEX [Suspect]
     Active Substance: VALPROATE SODIUM
     Dosage: 500 MG
  3. ABILIFY [Suspect]
     Active Substance: ARIPIPRAZOLE
     Indication: BIPOLAR DISORDER
     Dosage: UNK
     Dates: start: 2008
  4. ARIPIPRAZOLE. [Suspect]
     Active Substance: ARIPIPRAZOLE
     Dosage: 10 MG
  5. RISPERDAL [Suspect]
     Active Substance: RISPERIDONE
     Dosage: 1 MG
  6. RISPERDAL [Suspect]
     Active Substance: RISPERIDONE
     Dosage: 4 MG
  7. ARIPIPRAZOLE. [Suspect]
     Active Substance: ARIPIPRAZOLE
     Indication: BIPOLAR DISORDER
     Dosage: 15 MG
  8. GABAPENTIN. [Suspect]
     Active Substance: GABAPENTIN
     Dosage: UNK

REACTIONS (9)
  - Drug dependence [Recovered/Resolved]
  - Mental disorder [Unknown]
  - Stress [Not Recovered/Not Resolved]
  - Nervousness [Unknown]
  - Tremor [Unknown]
  - Drooling [Unknown]
  - Illness [Unknown]
  - Mood swings [Unknown]
  - Depression [Unknown]

NARRATIVE: CASE EVENT DATE: 2020
